FAERS Safety Report 18431956 (Version 1)
Quarter: 2020Q4

REPORT INFORMATION
  Report Type: Spontaneous
  Country: RO (occurrence: RO)
  Receive Date: 20201027
  Receipt Date: 20201027
  Transmission Date: 20210114
  Serious: Yes (Hospitalization, Other)
  Sender: FDA-Public Use
  Company Number: RO-JNJFOC-20201025772

PATIENT
  Age: 78 Year
  Sex: Male

DRUGS (3)
  1. DARZALEX [Suspect]
     Active Substance: DARATUMUMAB
     Indication: PLASMA CELL MYELOMA
     Route: 042
     Dates: start: 201812
  2. LENALIDOMIDE [Suspect]
     Active Substance: LENALIDOMIDE
     Indication: PLASMA CELL MYELOMA
     Route: 065
     Dates: start: 201812
  3. DEXAMETHASONE. [Suspect]
     Active Substance: DEXAMETHASONE
     Indication: PLASMA CELL MYELOMA
     Route: 065
     Dates: start: 201812

REACTIONS (16)
  - Sternal fracture [Unknown]
  - Facial bones fracture [Unknown]
  - Patella fracture [Unknown]
  - Dyspnoea [Recovered/Resolved]
  - Anaemia [Unknown]
  - Malaise [Recovered/Resolved]
  - Bradycardia [Recovered/Resolved]
  - Plasmacytoma [Unknown]
  - Atrial flutter [Unknown]
  - Road traffic accident [Unknown]
  - Thrombocytopenia [Unknown]
  - Infusion related reaction [Recovered/Resolved]
  - Pancytopenia [Unknown]
  - Fall [Unknown]
  - Radius fracture [Unknown]
  - Productive cough [Recovered/Resolved]

NARRATIVE: CASE EVENT DATE: 201812
